FAERS Safety Report 8355722-7 (Version None)
Quarter: 2012Q2

REPORT INFORMATION
  Report Type: 
  Country: None (occurrence: None)
  Receive Date: 20120510
  Receipt Date: 20120426
  Transmission Date: 20120825
  Serious: Yes (Other)
  Sender: FDA-Public Use
  Company Number: JPI-P-020610

PATIENT
  Age: 53 Year
  Sex: Male
  Weight: 102.0593 kg

DRUGS (22)
  1. VENTOLIN HFA (ALBUTEROL) [Concomitant]
  2. ZOCOR [Concomitant]
  3. XYREM [Suspect]
     Indication: CATAPLEXY
     Dosage: 14.5 GM (2.25 GM,2 IN 1 D),ORAL, 5 GM (2.5 GM,2 IN 1 D),ORAL
     Route: 048
     Dates: start: 20120323, end: 20120406
  4. XYREM [Suspect]
     Indication: CATAPLEXY
     Dosage: 14.5 GM (2.25 GM,2 IN 1 D),ORAL, 5 GM (2.5 GM,2 IN 1 D),ORAL
     Route: 048
     Dates: start: 20120425
  5. SYNTHROID [Concomitant]
  6. PRILOSEC [Concomitant]
  7. IRON [Concomitant]
  8. AXIRON (TESTOSTERONE) [Concomitant]
  9. LISINOPRIL [Concomitant]
  10. DEPAKOTE [Concomitant]
  11. BUDESONIDE AND FORMOTEROL [Concomitant]
  12. TRAVATAN Z (TRAVOPROST)(DROPS) [Concomitant]
  13. METOPROLOL TARTRATE [Concomitant]
  14. PAXIL [Concomitant]
  15. PROVIGIL [Concomitant]
  16. COLACE (DOCUSATE)(TABLETS) [Concomitant]
  17. FIBER (TABLETS) [Concomitant]
  18. ACETAMINOPHEN [Concomitant]
  19. NITROSTAT [Concomitant]
  20. CLONAZEPAM [Suspect]
     Indication: PRODUCT USED FOR UNKNOWN INDICATION
  21. LISINOPRIL AND HYDROCHLOROTHIAZIDE [Concomitant]
  22. AMLODIPINE BESYLATE [Concomitant]

REACTIONS (4)
  - THYROIDECTOMY [None]
  - DYSPNOEA [None]
  - SOMNOLENCE [None]
  - LYMPHADENECTOMY [None]
